FAERS Safety Report 16383062 (Version 1)
Quarter: 2019Q2

REPORT INFORMATION
  Report Type: Spontaneous
  Country: US (occurrence: US)
  Receive Date: 20190603
  Receipt Date: 20190603
  Transmission Date: 20190711
  Serious: No
  Sender: FDA-Public Use
  Company Number: PHEH2019US022999

PATIENT
  Sex: Male

DRUGS (1)
  1. VORICONAZOLE. [Suspect]
     Active Substance: VORICONAZOLE
     Indication: ONYCHOCLASIS
     Dosage: 200 MG, BID
     Route: 065
     Dates: start: 20190516, end: 20190528

REACTIONS (3)
  - Burning sensation [Unknown]
  - Incorrect route of product administration [Unknown]
  - Erythema [Unknown]
